FAERS Safety Report 26139668 (Version 2)
Quarter: 2025Q4

REPORT INFORMATION
  Report Type: Spontaneous
  Country: US (occurrence: US)
  Receive Date: 20251210
  Receipt Date: 20251226
  Transmission Date: 20260117
  Serious: Yes (Hospitalization, Other)
  Sender: AUROBINDO
  Company Number: US-MLMSERVICE-20251121-PI718137-00111-1

PATIENT
  Age: 29 Day
  Sex: Male

DRUGS (2)
  1. SULFAMETHOXAZOLE\TRIMETHOPRIM [Suspect]
     Active Substance: SULFAMETHOXAZOLE\TRIMETHOPRIM
     Indication: Bacterial infection
     Dosage: 10 MILLIGRAM/KILOGRAM, TWO TIMES A DAY
     Route: 065
  2. CIPROFLOXACIN [Concomitant]
     Active Substance: CIPROFLOXACIN
     Indication: Bacterial infection
     Dosage: 15 MILLIGRAM/KILOGRAM, TWO TIMES A DAY
     Route: 065

REACTIONS (5)
  - Subdural abscess [Recovered/Resolved]
  - Cerebral salt-wasting syndrome [Recovering/Resolving]
  - Hyponatraemia [Recovering/Resolving]
  - Tachycardia [Unknown]
  - Urine output increased [Unknown]
